FAERS Safety Report 4613301-9 (Version None)
Quarter: 2005Q1

REPORT INFORMATION
  Report Type: 
  Country: None (occurrence: None)
  Receive Date: 20050315
  Receipt Date: 20050302
  Transmission Date: 20050727
  Serious: Yes (Other)
  Sender: FDA-Public Use
  Company Number: CH-2005-003009

PATIENT
  Age: 38 Year
  Sex: Female
  Weight: 51 kg

DRUGS (1)
  1. MIRENA [Suspect]
     Indication: CONTRACEPTION
     Dosage: 20 UG/DAY, CONT, INTRA-UTERINE
     Route: 015
     Dates: start: 20020901

REACTIONS (4)
  - AMENORRHOEA [None]
  - ANAPHYLACTIC SHOCK [None]
  - AUTONOMIC NERVOUS SYSTEM IMBALANCE [None]
  - PAIN [None]
